FAERS Safety Report 10513493 (Version 1)
Quarter: 2014Q4

REPORT INFORMATION
  Report Type: Spontaneous
  Country: US (occurrence: US)
  Receive Date: 20141013
  Receipt Date: 20141013
  Transmission Date: 20150528
  Serious: No
  Sender: FDA-Public Use
  Company Number: US-009507513-1410USA002040

PATIENT
  Age: 29 Year
  Sex: Female
  Weight: 61.22 kg

DRUGS (1)
  1. NEXPLANON [Suspect]
     Active Substance: ETONOGESTREL
     Indication: CONTRACEPTION
     Dosage: 1 ROD FOR 3 YEARS
     Route: 059
     Dates: start: 20140501

REACTIONS (4)
  - Device kink [Unknown]
  - Product quality issue [Unknown]
  - Haemorrhage [Unknown]
  - Device breakage [Unknown]

NARRATIVE: CASE EVENT DATE: 20140601
